FAERS Safety Report 8519577-X (Version None)
Quarter: 2012Q3

REPORT INFORMATION
  Report Type: 
  Country: None (occurrence: None)
  Receive Date: 20120718
  Receipt Date: 20120710
  Transmission Date: 20120928
  Serious: Yes (Other)
  Sender: FDA-Public Use
  Company Number: JP-BAYER-2012-069597

PATIENT
  Age: 62 Year
  Sex: Female
  Weight: 50 kg

DRUGS (17)
  1. LENDORMIN [Concomitant]
     Dosage: DAILY DOSE .25 MG
     Route: 048
     Dates: start: 20120201, end: 20120612
  2. URSO 250 [Concomitant]
     Dosage: DAILY DOSE 600 MG
     Route: 048
  3. ZOLPIDEM [Concomitant]
     Dosage: DAILY DOSE 10 MG
     Route: 048
     Dates: end: 20120131
  4. LIVACT [Concomitant]
     Dosage: DAILY DOSE 3 DF
     Route: 048
  5. AMINOLEBAN EN [Concomitant]
     Dosage: DAILY DOSE 50 G
     Route: 048
     Dates: start: 20120229
  6. AMINOLEBAN EN [Concomitant]
     Dosage: DAILY DOSE 50 G
     Route: 048
     Dates: start: 20120229
  7. EURAX [Concomitant]
     Dosage: UNK
     Route: 061
     Dates: end: 20111206
  8. NEXAVAR [Suspect]
     Indication: HEPATIC NEOPLASM MALIGNANT
     Dosage: 200 MG/DAY
     Route: 048
     Dates: start: 20111019, end: 20120425
  9. NEXAVAR [Suspect]
     Dosage: 200 MG, QOD
     Route: 048
     Dates: start: 20120426, end: 20120509
  10. OLMESARTAN MEDOXOMIL [Concomitant]
     Dosage: DAILY DOSE 40 MG
     Route: 048
     Dates: start: 20120118
  11. PRIMPERAN TAB [Concomitant]
     Indication: NAUSEA
     Dosage: DAILY DOSE 15 MG
     Route: 048
     Dates: start: 20120118
  12. AMINOLEBAN EN [Concomitant]
     Indication: NAIL RIDGING
     Dosage: DAILY DOSE 50 G
     Route: 048
     Dates: end: 20120228
  13. ALLEGRA [Concomitant]
     Dosage: DAILY DOSE 120 MG
     Route: 048
     Dates: end: 20111123
  14. LOXONIN [Concomitant]
     Indication: PYREXIA
     Dosage: UNK
     Route: 048
  15. OLMESARTAN MEDOXOMIL [Concomitant]
     Dosage: DAILY DOSE 20 MG
     Route: 048
     Dates: end: 20120117
  16. OLMESARTAN MEDOXOMIL [Concomitant]
     Dosage: DAILY DOSE 40 MG
     Route: 048
     Dates: start: 20120118
  17. UREPEARL [Concomitant]
     Indication: PROPHYLAXIS
     Dosage: UNK
     Route: 061
     Dates: end: 20111206

REACTIONS (9)
  - HYPOPHOSPHATAEMIA [None]
  - HEPATIC FUNCTION ABNORMAL [None]
  - NAIL RIDGING [None]
  - HYPERTENSION [None]
  - AMYLASE INCREASED [None]
  - DIARRHOEA [None]
  - LIPASE INCREASED [None]
  - PALMAR-PLANTAR ERYTHRODYSAESTHESIA SYNDROME [None]
  - PYREXIA [None]
